FAERS Safety Report 15147325 (Version 2)
Quarter: 2018Q3

REPORT INFORMATION
  Report Type: Report from Study
  Country: None (occurrence: TR)
  Receive Date: 20180716
  Receipt Date: 20180730
  Transmission Date: 20181010
  Serious: Yes (Hospitalization)
  Sender: FDA-Public Use
  Company Number: TR-ABBVIE-18K-161-2420066-00

PATIENT
  Age: 77 Year
  Sex: Female
  Weight: 72 kg

DRUGS (7)
  1. MAJEZIK [Suspect]
     Active Substance: FLURBIPROFEN
     Indication: ANALGESIC THERAPY
     Route: 048
     Dates: start: 20180701, end: 20180710
  2. GAVISCON [Concomitant]
     Active Substance: ALUMINUM HYDROXIDE\MAGNESIUM CARBONATE
     Indication: ABDOMINAL DISCOMFORT
     Dosage: 500 MG /10 ML
     Route: 048
     Dates: start: 2008
  3. HUMIRA [Suspect]
     Active Substance: ADALIMUMAB
     Indication: RHEUMATOID ARTHRITIS
     Route: 058
     Dates: start: 20180111, end: 20180711
  4. FOLBIOL [Concomitant]
     Active Substance: FOLIC ACID
     Indication: RHEUMATOID ARTHRITIS
     Route: 048
     Dates: start: 201705
  5. HUMIRA [Suspect]
     Active Substance: ADALIMUMAB
     Route: 058
     Dates: start: 20180718
  6. PULCET [Concomitant]
     Active Substance: PANTOPRAZOLE SODIUM
     Indication: ABDOMINAL DISCOMFORT
     Route: 048
     Dates: start: 2008
  7. METHOTREXATE. [Concomitant]
     Active Substance: METHOTREXATE
     Indication: RHEUMATOID ARTHRITIS
     Dosage: ONCE IN A WEEK 1X6 DOSE
     Route: 048
     Dates: start: 201705

REACTIONS (3)
  - Gastrointestinal haemorrhage [Recovered/Resolved]
  - Decreased appetite [Recovered/Resolved]
  - Asthenia [Recovered/Resolved]

NARRATIVE: CASE EVENT DATE: 20180706
